FAERS Safety Report 9084491 (Version 1)
Quarter: 2013Q1

REPORT INFORMATION
  Report Type: Spontaneous
  Country: US (occurrence: US)
  Receive Date: 20130131
  Receipt Date: 20130131
  Transmission Date: 20140127
  Serious: No
  Sender: FDA-Public Use
  Company Number: US-ABBOTT-12P-163-1001792-00

PATIENT
  Sex: Male

DRUGS (5)
  1. HUMIRA [Suspect]
     Indication: CROHN^S DISEASE
     Route: 058
     Dates: start: 2007
  2. HUMIRA [Suspect]
     Route: 058
     Dates: end: 201210
  3. HUMIRA [Suspect]
     Route: 058
     Dates: start: 201210
  4. 6-MP [Concomitant]
     Indication: CROHN^S DISEASE
  5. BALSALAZIDE [Concomitant]
     Indication: CROHN^S DISEASE

REACTIONS (2)
  - Crohn^s disease [Not Recovered/Not Resolved]
  - Medication error [Recovered/Resolved]
